FAERS Safety Report 16944034 (Version 1)
Quarter: 2019Q4

REPORT INFORMATION
  Report Type: Spontaneous
  Country: DE (occurrence: US)
  Receive Date: 20191022
  Receipt Date: 20191022
  Transmission Date: 20200122
  Serious: No
  Sender: FDA-Public Use
  Company Number: DE-ALK-ABELLO A/S-2019AA003319

PATIENT

DRUGS (1)
  1. GRAZAX [Suspect]
     Active Substance: PHLEUM PRATENSE POLLEN
     Indication: PRODUCT USED FOR UNKNOWN INDICATION
     Dosage: 75000 SQ
     Route: 060
     Dates: start: 201908

REACTIONS (3)
  - Cough [Unknown]
  - Dyspnoea exertional [Unknown]
  - Throat irritation [Unknown]
